FAERS Safety Report 7563808-X (Version None)
Quarter: 2011Q2

REPORT INFORMATION
  Report Type: 
  Country: None (occurrence: None)
  Receive Date: 20110622
  Receipt Date: 20110622
  Transmission Date: 20111010
  Serious: Yes (Other)
  Sender: FDA-Public Use
  Company Number: GB-ABBOTT-11P-167-0733553-00

PATIENT
  Sex: Female

DRUGS (1)
  1. CLARITHROMYCIN [Suspect]
     Indication: PRODUCT USED FOR UNKNOWN INDICATION

REACTIONS (10)
  - ANAPHYLACTIC REACTION [None]
  - MALAISE [None]
  - LACRIMATION INCREASED [None]
  - ANGIOEDEMA [None]
  - EYE SWELLING [None]
  - ORAL DISCHARGE [None]
  - ASTHMA [None]
  - SWOLLEN TONGUE [None]
  - ABDOMINAL PAIN UPPER [None]
  - RESPIRATORY TRACT OEDEMA [None]
